FAERS Safety Report 14851814 (Version 1)
Quarter: 2018Q2

REPORT INFORMATION
  Report Type: Spontaneous
  Country: NL (occurrence: NL)
  Receive Date: 20180507
  Receipt Date: 20180507
  Transmission Date: 20180711
  Serious: Yes (Other)
  Sender: FDA-Public Use
  Company Number: NL-ROCHE-2118274

PATIENT
  Sex: Female

DRUGS (1)
  1. XOLAIR [Suspect]
     Active Substance: OMALIZUMAB
     Indication: PRODUCT USED FOR UNKNOWN INDICATION
     Route: 065
     Dates: start: 20161223

REACTIONS (6)
  - Arrhythmia [Unknown]
  - Nasal congestion [Not Recovered/Not Resolved]
  - Choking sensation [Unknown]
  - Weight decreased [Unknown]
  - Upper respiratory tract inflammation [Unknown]
  - Blood immunoglobulin E abnormal [Unknown]
